FAERS Safety Report 12401393 (Version 1)
Quarter: 2016Q2

REPORT INFORMATION
  Report Type: Spontaneous
  Country: US (occurrence: None)
  Receive Date: 20160524
  Receipt Date: 20160524
  Transmission Date: 20160815
  Serious: No
  Sender: FDA-Public Use
  Company Number: None

PATIENT
  Age: 38 Year
  Sex: Female

DRUGS (17)
  1. MEDESTROL [Concomitant]
  2. LORAZEPAM. [Concomitant]
     Active Substance: LORAZEPAM
  3. XARELTO [Concomitant]
     Active Substance: RIVAROXABAN
  4. PROVENTIL [Concomitant]
     Active Substance: ALBUTEROL
  5. TRANSDERM-SC [Concomitant]
  6. FENTANYL. [Concomitant]
     Active Substance: FENTANYL
  7. LETROZOLE. [Concomitant]
     Active Substance: LETROZOLE
  8. FLUCONAZOLE. [Concomitant]
     Active Substance: FLUCONAZOLE
  9. PANTOPRAZOLE [Concomitant]
     Active Substance: PANTOPRAZOLE SODIUM
  10. MORPHINE [Concomitant]
     Active Substance: MORPHINE
  11. SENNA [Concomitant]
     Active Substance: SENNA LEAF\SENNOSIDES\SENNOSIDES A AND B
  12. POLYETH GLYC [Concomitant]
     Active Substance: POLYETHYLENE GLYCOLS
  13. IBRANCE [Suspect]
     Active Substance: PALBOCICLIB
     Indication: BREAST CANCER
     Route: 048
     Dates: start: 20150911
  14. PROMETHAGAN [Concomitant]
  15. FAMOTIDINE. [Concomitant]
     Active Substance: FAMOTIDINE
  16. HYDROMORPHONE [Concomitant]
     Active Substance: HYDROMORPHONE
  17. METHADONE [Concomitant]
     Active Substance: METHADONE HYDROCHLORIDE

REACTIONS (3)
  - Asthenia [None]
  - Pain [None]
  - Malaise [None]

NARRATIVE: CASE EVENT DATE: 20160520
